FAERS Safety Report 19526507 (Version 1)
Quarter: 2021Q3

REPORT INFORMATION
  Report Type: Spontaneous
  Country: US (occurrence: US)
  Receive Date: 20210713
  Receipt Date: 20210713
  Transmission Date: 20211014
  Serious: No
  Sender: FDA-Public Use
  Company Number: US-GLAXOSMITHKLINE-USCH2021044677

PATIENT
  Age: 68 Year
  Sex: Male

DRUGS (1)
  1. ALLI [Suspect]
     Active Substance: ORLISTAT
     Indication: WEIGHT LOSS DIET
     Dosage: UNK

REACTIONS (6)
  - Drug ineffective [Unknown]
  - Feeling abnormal [Unknown]
  - Abdominal distension [Unknown]
  - Weight increased [Unknown]
  - Dyspnoea [Unknown]
  - Condition aggravated [Unknown]
